FAERS Safety Report 7358924-1 (Version None)
Quarter: 2011Q1

REPORT INFORMATION
  Report Type: 
  Country: None (occurrence: None)
  Receive Date: 20110317
  Receipt Date: 20110310
  Transmission Date: 20110831
  Serious: Yes (Other)
  Sender: FDA-Public Use
  Company Number: ES-BRISTOL-MYERS SQUIBB COMPANY-15599319

PATIENT
  Age: 71 Year
  Sex: Female
  Weight: 61 kg

DRUGS (2)
  1. ONGLYZA [Suspect]
     Indication: HYPERGLYCAEMIA
     Dosage: FILM COATED TAB
     Route: 048
     Dates: start: 20101004, end: 20101027
  2. DIGOXIN [Concomitant]
     Dosage: FOR SEVERAL YEARS
     Route: 048

REACTIONS (2)
  - OEDEMA PERIPHERAL [None]
  - BRADYCARDIA [None]
